FAERS Safety Report 10261289 (Version 1)
Quarter: 2014Q2

REPORT INFORMATION
  Report Type: Spontaneous
  Country: US (occurrence: US)
  Receive Date: 20140626
  Receipt Date: 20140626
  Transmission Date: 20141212
  Serious: No
  Sender: FDA-Public Use
  Company Number: US-BAYER-2014-095907

PATIENT
  Sex: Female

DRUGS (2)
  1. STIVARGA [Suspect]
     Dosage: UNK
     Dates: start: 201405
  2. STIVARGA [Suspect]
     Dosage: 3/4 DOSE

REACTIONS (2)
  - Hepatic enzyme increased [None]
  - Rash generalised [Recovered/Resolved]
